FAERS Safety Report 23937199 (Version 1)
Quarter: 2024Q2

REPORT INFORMATION
  Report Type: Spontaneous
  Country: US (occurrence: US)
  Receive Date: 20240604
  Receipt Date: 20240604
  Transmission Date: 20240715
  Serious: Yes (Life-Threatening, Hospitalization, Other)
  Sender: FDA-Public Use
  Company Number: US-SANDOZ-SDZ2024US053980

PATIENT
  Age: 34 Year
  Sex: Male

DRUGS (18)
  1. BENZTROPINE [Suspect]
     Active Substance: BENZTROPINE
     Indication: Extrapyramidal disorder
     Dosage: 1 MG, BID
     Route: 065
  2. CLOZAPINE [Suspect]
     Active Substance: CLOZAPINE
     Dosage: 50 MG, QD
     Route: 065
  3. CLOZAPINE [Suspect]
     Active Substance: CLOZAPINE
     Dosage: 50 MG, TID
     Route: 065
  4. CLOZAPINE [Suspect]
     Active Substance: CLOZAPINE
     Indication: Bipolar disorder
     Dosage: 100 TO 450 MG
     Route: 065
  5. QUETIAPINE [Suspect]
     Active Substance: QUETIAPINE
     Indication: Bipolar disorder
     Dosage: 400 MG, BID
     Route: 065
  6. QUETIAPINE [Suspect]
     Active Substance: QUETIAPINE
     Dosage: 50 MG, QD
     Route: 065
  7. SENNA [Suspect]
     Active Substance: SENNA LEAF\SENNOSIDES\SENNOSIDES A AND B
     Indication: Intellectual disability
     Dosage: UNK
     Route: 065
  8. SENNA [Suspect]
     Active Substance: SENNA LEAF\SENNOSIDES\SENNOSIDES A AND B
     Indication: Constipation
  9. CITALOPRAM [Concomitant]
     Active Substance: CITALOPRAM\CITALOPRAM HYDROBROMIDE
     Indication: Product used for unknown indication
     Dosage: 10 MG, QD
     Route: 065
  10. DOCUSATE [Concomitant]
     Active Substance: DOCUSATE
     Indication: Product used for unknown indication
     Dosage: UNK
     Route: 065
  11. LORAZEPAM [Concomitant]
     Active Substance: LORAZEPAM
     Indication: Agitation
     Dosage: UNK
     Route: 065
  12. LORAZEPAM [Concomitant]
     Active Substance: LORAZEPAM
     Indication: Anxiety
  13. METRONIDAZOLE [Concomitant]
     Active Substance: METRONIDAZOLE
     Indication: Intestinal obstruction
     Dosage: UNK
     Route: 065
  14. MINERAL OIL [Concomitant]
     Active Substance: MINERAL OIL
     Indication: Intestinal obstruction
     Dosage: UNK
     Route: 065
  15. POLYETHYLENE GLYCOL [Concomitant]
     Active Substance: POLYETHYLENE GLYCOL
     Indication: Product used for unknown indication
     Dosage: UNK
     Route: 065
  16. VALPROATE SODIUM [Concomitant]
     Active Substance: VALPROATE SODIUM
     Indication: Anxiety
     Dosage: 250 MG, QID
     Route: 065
  17. VALPROATE SODIUM [Concomitant]
     Active Substance: VALPROATE SODIUM
     Indication: Agitation
  18. VANCOMYCIN [Concomitant]
     Active Substance: VANCOMYCIN
     Indication: Intestinal obstruction
     Dosage: UNK
     Route: 065

REACTIONS (5)
  - Septic shock [Unknown]
  - Clostridium difficile infection [Unknown]
  - Gastrointestinal hypomotility [Unknown]
  - Intestinal obstruction [Unknown]
  - Drug interaction [Unknown]
